FAERS Safety Report 4997525-7 (Version None)
Quarter: 2006Q2

REPORT INFORMATION
  Report Type: 
  Country: None (occurrence: None)
  Receive Date: 20060509
  Receipt Date: 20060428
  Transmission Date: 20061013
  Serious: Yes (Hospitalization)
  Sender: FDA-Public Use
  Company Number: US-MERCK-0605USA00052

PATIENT
  Age: 71 Year
  Sex: Female
  Weight: 75 kg

DRUGS (11)
  1. VIOXX [Suspect]
     Indication: ARTHRITIS
     Route: 048
     Dates: start: 19990901, end: 20010801
  2. HYDROCHLOROTHIAZIDE [Concomitant]
     Route: 065
  3. TRIAMTERENE [Concomitant]
     Route: 065
  4. TRILEPTAL [Concomitant]
     Route: 065
  5. PREMARIN [Concomitant]
     Route: 065
  6. ZOLOFT [Concomitant]
     Route: 065
  7. DIAZEPAM [Concomitant]
     Route: 065
  8. ALPRAZOLAM [Suspect]
     Route: 065
  9. DETROL [Concomitant]
     Route: 065
  10. ALLEGRA [Concomitant]
     Route: 065
  11. HYZAAR [Concomitant]
     Route: 065

REACTIONS (1)
  - CEREBROVASCULAR ACCIDENT [None]
